FAERS Safety Report 14450409 (Version 1)
Quarter: 2018Q1

REPORT INFORMATION
  Report Type: Spontaneous
  Country: FR (occurrence: FR)
  Receive Date: 20180129
  Receipt Date: 20180129
  Transmission Date: 20180509
  Serious: Yes (Hospitalization)
  Sender: FDA-Public Use
  Company Number: FR-CONCORDIA PHARMACEUTICALS INC.-E2B_00009598

PATIENT
  Age: 88 Year
  Sex: Female
  Weight: 87.2 kg

DRUGS (2)
  1. PREDNISOLONE. [Suspect]
     Active Substance: PREDNISOLONE
     Indication: RHEUMATIC DISORDER
     Dates: start: 2010, end: 2012
  2. CORTANCYL [Suspect]
     Active Substance: PREDNISONE
     Indication: RHEUMATIC DISORDER
     Route: 048
     Dates: start: 2012, end: 2013

REACTIONS (2)
  - Spinal compression fracture [Not Recovered/Not Resolved]
  - Spinal pain [Not Recovered/Not Resolved]

NARRATIVE: CASE EVENT DATE: 201201
